FAERS Safety Report 5406379-6 (Version None)
Quarter: 2007Q3

REPORT INFORMATION
  Report Type: 
  Country: None (occurrence: None)
  Receive Date: 20070713
  Receipt Date: 20070228
  Transmission Date: 20080115
  Serious: Yes (Hospitalization, Other)
  Sender: FDA-Public Use
  Company Number: US-JNJFOC-20060805883

PATIENT
  Age: 34 Year
  Sex: Female
  Weight: 83.2351 kg

DRUGS (4)
  1. ORTHO EVRA [Suspect]
     Indication: CONTRACEPTION
     Dosage: TRANSDERMAL
     Route: 062
     Dates: start: 20021016, end: 20040801
  2. TRIMAX (SIMECO) [Concomitant]
  3. PHENTERMINE [Concomitant]
  4. FD500 (ALL OTHER NON-THERAPEUTIC PRODUCTS) [Concomitant]

REACTIONS (1)
  - PULMONARY EMBOLISM [None]
